FAERS Safety Report 8435934-4 (Version None)
Quarter: 2012Q2

REPORT INFORMATION
  Report Type: 
  Country: None (occurrence: None)
  Receive Date: 20120614
  Receipt Date: 20120612
  Transmission Date: 20120825
  Serious: Yes (Death, Hospitalization, Other)
  Sender: FDA-Public Use
  Company Number: JP-ROCHE-1062280

PATIENT
  Age: 39 Year
  Sex: Female

DRUGS (4)
  1. ZOLADEX [Concomitant]
     Indication: BREAST CANCER METASTATIC
     Route: 058
  2. XELODA [Suspect]
     Indication: BREAST CANCER METASTATIC
     Dosage: DOSAGE IS UNCERTAIN.
     Route: 048
  3. TAMOXIFEN CITRATE [Concomitant]
     Indication: BREAST CANCER METASTATIC
     Route: 048
  4. LAPATINIB TOSILATE [Concomitant]
     Indication: BREAST CANCER METASTATIC
     Dosage: DOSAGE IS UNCERTAIN.
     Route: 041

REACTIONS (3)
  - DISEASE PROGRESSION [None]
  - SMALL INTESTINAL PERFORATION [None]
  - INTESTINAL OBSTRUCTION [None]
